FAERS Safety Report 10039315 (Version 1)
Quarter: 2014Q1

REPORT INFORMATION
  Report Type: Spontaneous
  Country: KR (occurrence: KR)
  Receive Date: 20140326
  Receipt Date: 20140326
  Transmission Date: 20141002
  Serious: Yes (Hospitalization)
  Sender: FDA-Public Use
  Company Number: PHHY2014KR032709

PATIENT
  Age: 63 Year
  Sex: Female

DRUGS (5)
  1. BENZYLPENICILLIN [Suspect]
     Indication: STREPTOCOCCAL INFECTION
     Dosage: 500 MILLION UNITS, Q6H
  2. BENZYLPENICILLIN [Suspect]
     Dosage: 400 MILLION UNITS, Q4H
  3. GENTAMICIN [Suspect]
     Indication: STREPTOCOCCAL INFECTION
  4. CEFTRIAXONE [Concomitant]
  5. VANCOMYCIN [Concomitant]
     Indication: STREPTOCOCCAL INFECTION

REACTIONS (7)
  - Cystitis haemorrhagic [Recovered/Resolved]
  - Pyuria [Recovered/Resolved]
  - Dysuria [Recovered/Resolved]
  - Haematuria [Recovered/Resolved]
  - Pollakiuria [Recovered/Resolved]
  - Eosinophilia [Recovered/Resolved]
  - Periphlebitis [Recovered/Resolved]
